FAERS Safety Report 11683418 (Version 4)
Quarter: 2017Q4

REPORT INFORMATION
  Report Type: Report from Study
  Country: GR (occurrence: GR)
  Receive Date: 20151029
  Receipt Date: 20171031
  Transmission Date: 20180320
  Serious: Yes (Hospitalization, Other)
  Sender: FDA-Public Use
  Company Number: GR-INCYTE CORPORATION-2015IN005436

PATIENT

DRUGS (39)
  1. JAKAVI [Suspect]
     Active Substance: RUXOLITINIB
     Indication: MYELOFIBROSIS
     Dosage: 5 MG, BID (1 X 2)
     Route: 048
     Dates: start: 20150302
  2. LASIX [Concomitant]
     Active Substance: FUROSEMIDE
     Indication: ANAEMIA
  3. PULMICORT TURBUHALER [Concomitant]
     Active Substance: BUDESONIDE
     Indication: PRODUCT USED FOR UNKNOWN INDICATION
     Dosage: (1 X 2)
     Route: 065
     Dates: start: 20150313, end: 20150319
  4. XAGRID [Concomitant]
     Active Substance: ANAGRELIDE HYDROCHLORIDE
     Indication: CHRONIC OBSTRUCTIVE PULMONARY DISEASE
  5. DUOCOVER [Concomitant]
     Indication: CHRONIC OBSTRUCTIVE PULMONARY DISEASE
  6. APROVEL [Concomitant]
     Active Substance: IRBESARTAN
     Indication: CHRONIC OBSTRUCTIVE PULMONARY DISEASE
     Dosage: 150 MG, QD (1 X1)
     Route: 065
  7. SILODYX [Concomitant]
     Active Substance: SILODOSIN
     Indication: CHRONIC OBSTRUCTIVE PULMONARY DISEASE
     Dosage: 8 MG, UNK
     Route: 065
  8. SILODYX [Concomitant]
     Active Substance: SILODOSIN
     Indication: CARDIAC FAILURE
  9. SILODYX [Concomitant]
     Active Substance: SILODOSIN
     Indication: BENIGN PROSTATIC HYPERPLASIA
  10. IPRATROPIUM BROMIDE. [Concomitant]
     Active Substance: IPRATROPIUM BROMIDE
     Route: 065
  11. LASIX [Concomitant]
     Active Substance: FUROSEMIDE
     Indication: PRODUCT USED FOR UNKNOWN INDICATION
     Dosage: (1 X 1)
     Route: 065
     Dates: start: 20150313, end: 20150319
  12. PULMICORT TURBUHALER [Concomitant]
     Active Substance: BUDESONIDE
     Indication: CHRONIC OBSTRUCTIVE PULMONARY DISEASE
  13. ATARAX [Concomitant]
     Active Substance: HYDROXYZINE HYDROCHLORIDE
     Indication: PRODUCT USED FOR UNKNOWN INDICATION
     Route: 065
  14. DUOCOVER [Concomitant]
     Indication: PRODUCT USED FOR UNKNOWN INDICATION
     Dosage: UNK
  15. APROVEL [Concomitant]
     Active Substance: IRBESARTAN
     Indication: CARDIAC FAILURE
  16. SILODYX [Concomitant]
     Active Substance: SILODOSIN
     Indication: PRODUCT USED FOR UNKNOWN INDICATION
     Dosage: 8 MG, UNK
     Route: 065
  17. APROVEL [Concomitant]
     Active Substance: IRBESARTAN
     Indication: BENIGN PROSTATIC HYPERPLASIA
  18. XOZAL [Concomitant]
     Active Substance: LEVOCETIRIZINE
     Indication: CARDIAC FAILURE
  19. DILATREND [Concomitant]
     Active Substance: CARVEDILOL
     Indication: CARDIAC FAILURE
  20. DAXAS [Concomitant]
     Active Substance: ROFLUMILAST
     Indication: CHRONIC OBSTRUCTIVE PULMONARY DISEASE
  21. XAGRID [Concomitant]
     Active Substance: ANAGRELIDE HYDROCHLORIDE
     Indication: BENIGN PROSTATIC HYPERPLASIA
  22. DUOCOVER [Concomitant]
     Indication: CARDIAC FAILURE
  23. APROVEL [Concomitant]
     Active Substance: IRBESARTAN
     Indication: PRODUCT USED FOR UNKNOWN INDICATION
     Dosage: 150 MG, QD (1 X1)
     Route: 065
  24. IPRATROPIUM BROMIDE. [Concomitant]
     Active Substance: IPRATROPIUM BROMIDE
     Indication: PRODUCT USED FOR UNKNOWN INDICATION
     Route: 065
  25. LORINDIN//LORATADINE [Concomitant]
     Indication: PRODUCT USED FOR UNKNOWN INDICATION
     Dosage: UNK
     Dates: start: 20150313, end: 20150319
  26. DAXAS [Concomitant]
     Active Substance: ROFLUMILAST
     Indication: PRODUCT USED FOR UNKNOWN INDICATION
     Dosage: (0.5 X 1)
     Route: 065
     Dates: start: 20150313, end: 20150319
  27. DAXAS [Concomitant]
     Active Substance: ROFLUMILAST
     Indication: CARDIAC FAILURE
  28. DAXAS [Concomitant]
     Active Substance: ROFLUMILAST
     Indication: BENIGN PROSTATIC HYPERPLASIA
  29. XAGRID [Concomitant]
     Active Substance: ANAGRELIDE HYDROCHLORIDE
     Indication: PRODUCT USED FOR UNKNOWN INDICATION
     Dosage: UNK
     Route: 065
     Dates: start: 20150313, end: 20150319
  30. XAGRID [Concomitant]
     Active Substance: ANAGRELIDE HYDROCHLORIDE
     Indication: CARDIAC FAILURE
  31. DUOCOVER [Concomitant]
     Indication: BENIGN PROSTATIC HYPERPLASIA
     Dosage: (1 X 1)
     Route: 065
  32. XOZAL [Concomitant]
     Active Substance: LEVOCETIRIZINE
     Indication: BENIGN PROSTATIC HYPERPLASIA
     Dosage: (1X 1)
     Route: 065
  33. XOZAL [Concomitant]
     Active Substance: LEVOCETIRIZINE
     Indication: CHRONIC OBSTRUCTIVE PULMONARY DISEASE
  34. PULMICORT TURBUHALER [Concomitant]
     Active Substance: BUDESONIDE
     Indication: BENIGN PROSTATIC HYPERPLASIA
  35. XOZAL [Concomitant]
     Active Substance: LEVOCETIRIZINE
     Indication: PRODUCT USED FOR UNKNOWN INDICATION
     Dosage: UNK
  36. DILATREND [Concomitant]
     Active Substance: CARVEDILOL
     Indication: BENIGN PROSTATIC HYPERPLASIA
     Dosage: 6.25 UNK, (0.5 X 1)
     Route: 065
  37. PULMICORT TURBUHALER [Concomitant]
     Active Substance: BUDESONIDE
     Indication: CARDIAC FAILURE
  38. DILATREND [Concomitant]
     Active Substance: CARVEDILOL
     Indication: PRODUCT USED FOR UNKNOWN INDICATION
     Dosage: 6.25 UNK, (0.5 X 1)
     Route: 065
  39. LORIDIN//LORATADINE [Concomitant]
     Indication: ANAEMIA
     Dosage: (1 X 2)
     Route: 065
     Dates: start: 20150313, end: 20150319

REACTIONS (5)
  - Escherichia urinary tract infection [Unknown]
  - Asthenia [Recovered/Resolved]
  - Anaemia [Recovered/Resolved]
  - Neutrophil count increased [Unknown]
  - Abdominal discomfort [Recovered/Resolved]

NARRATIVE: CASE EVENT DATE: 20150312
